FAERS Safety Report 6433975-X (Version None)
Quarter: 2009Q4

REPORT INFORMATION
  Report Type: 
  Country: None (occurrence: None)
  Receive Date: 20091106
  Receipt Date: 20091106
  Transmission Date: 20100525
  Serious: Yes (Hospitalization)
  Sender: FDA-Public Use
  Company Number: None

PATIENT
  Age: 67 Year
  Sex: Male
  Weight: 80.74 kg

DRUGS (1)
  1. RANOLAZINE [Suspect]
     Dosage: 1000 MG BID PO
     Route: 048
     Dates: start: 20090518

REACTIONS (4)
  - ANGINA PECTORIS [None]
  - DIZZINESS [None]
  - NAUSEA [None]
  - VOMITING [None]
